FAERS Safety Report 22180512 (Version 1)
Quarter: 2023Q2

REPORT INFORMATION
  Report Type: Spontaneous
  Country: US (occurrence: US)
  Receive Date: 20230406
  Receipt Date: 20230406
  Transmission Date: 20230722
  Serious: No
  Sender: FDA-Public Use
  Company Number: US-JNJFOC-20230375006

PATIENT
  Age: 30 Year
  Sex: Male

DRUGS (1)
  1. MENS ROGAINE EXTRA STRENGTH [Suspect]
     Active Substance: MINOXIDIL
     Indication: Alopecia
     Dosage: A LITTLE MORE THAN 1/2 CAPFUL
     Route: 061
     Dates: start: 2022

REACTIONS (2)
  - Product administered at inappropriate site [Unknown]
  - Overdose [Unknown]

NARRATIVE: CASE EVENT DATE: 20220101
